FAERS Safety Report 9785613 (Version 1)
Quarter: 2013Q4

REPORT INFORMATION
  Report Type: Spontaneous
  Country: US (occurrence: US)
  Receive Date: 20131227
  Receipt Date: 20131227
  Transmission Date: 20140711
  Serious: No
  Sender: FDA-Public Use
  Company Number: US-TEVA-448640USA

PATIENT
  Sex: Female
  Weight: 67.19 kg

DRUGS (3)
  1. NUVIGIL [Suspect]
     Indication: NARCOLEPSY
     Route: 048
  2. ADDERALL [Concomitant]
     Indication: NARCOLEPSY
  3. ABILIFY [Concomitant]

REACTIONS (1)
  - Drug ineffective [Not Recovered/Not Resolved]
